FAERS Safety Report 4318967-9 (Version None)
Quarter: 2004Q1

REPORT INFORMATION
  Report Type: 
  Country: None (occurrence: None)
  Receive Date: 20040316
  Receipt Date: 20031216
  Transmission Date: 20041129
  Serious: No
  Sender: FDA-Public Use
  Company Number: F04200300223

PATIENT
  Age: 69 Year
  Sex: Female

DRUGS (4)
  1. FASTURTEC - (RASBURICASE) - SOLUTION - UNIT DOSE : UNKNOWN [Suspect]
     Indication: HYPERURICAEMIA
     Dosage: 12 MG OD, INTRAVENOUS DRIP
     Route: 041
     Dates: start: 20031015, end: 20031017
  2. FASTURTEC - (RASBURICASE) - SOLUTION - UNIT DOSE : UNKNOWN [Suspect]
     Indication: PROPHYLAXIS
     Dosage: 12 MG OD, INTRAVENOUS DRIP
     Route: 041
     Dates: start: 20031015, end: 20031017
  3. FLUDARABIN (FLUDARABINE PHOSPHATE) [Concomitant]
  4. KEVATRIL (GRANISETRON HYDROCHLORIDE) [Concomitant]

REACTIONS (2)
  - IRITIS [None]
  - VITREOUS DISORDER [None]
